FAERS Safety Report 8033283-X (Version None)
Quarter: 2012Q1

REPORT INFORMATION
  Report Type: 
  Country: None (occurrence: None)
  Receive Date: 20120110
  Receipt Date: 20111230
  Transmission Date: 20120608
  Serious: Yes (Hospitalization)
  Sender: FDA-Public Use
  Company Number: DE-SANOFI-AVENTIS-2011SA033432

PATIENT
  Age: 62 Year
  Sex: Male
  Weight: 163 kg

DRUGS (8)
  1. CAPECITABINE [Suspect]
     Route: 048
  2. OXALIPLATIN [Suspect]
     Dosage: D1, 8, 15, 22, 29
     Route: 042
     Dates: start: 20110502
  3. THERAPEUTIC RADIOPHARMACEUTICALS [Suspect]
     Indication: RECTAL CANCER
     Dosage: 1.8 GY PER FRACTION D1-33 WITHOUT WEEKENDS+OPTIONAL BOOST.25 FRACTIONS GIVEN FOR TOTAL 45GY
     Route: 065
     Dates: start: 20110411, end: 20110513
  4. CAPECITABINE [Suspect]
     Route: 048
     Dates: start: 20110411, end: 20110502
  5. CAPECITABINE [Suspect]
     Indication: RECTAL CANCER
     Route: 048
     Dates: start: 20110505, end: 20110505
  6. DIPYRONE INJ [Concomitant]
     Indication: ABDOMINAL PAIN
     Route: 048
     Dates: start: 20110509, end: 20110515
  7. OXALIPLATIN [Suspect]
     Indication: RECTAL CANCER
     Route: 042
     Dates: start: 20110411, end: 20110411
  8. LOPERAMIDE [Concomitant]
     Route: 048
     Dates: start: 20110509, end: 20110515

REACTIONS (2)
  - GASTRIC ULCER [None]
  - ARTHRITIS REACTIVE [None]
